FAERS Safety Report 23388437 (Version 2)
Quarter: 2024Q1

REPORT INFORMATION
  Report Type: Spontaneous
  Country: US (occurrence: US)
  Receive Date: 20240110
  Receipt Date: 20240129
  Transmission Date: 20240409
  Serious: Yes (Other)
  Sender: FDA-Public Use
  Company Number: US-PFIZER INC-202400004335

PATIENT
  Age: 63 Year
  Sex: Male

DRUGS (1)
  1. RUXIENCE [Suspect]
     Active Substance: RITUXIMAB-PVVR
     Dosage: 375 MG/M2 (INFUSION RATE 1ST DOSE:50MG/HR,THEN 50MG/HR Q30 MINS.UNTIL MAX.RATE OF 400MG/HR REACHED)
     Route: 042

REACTIONS (2)
  - Chronic lymphocytic leukaemia [Unknown]
  - White blood cell count increased [Unknown]

NARRATIVE: CASE EVENT DATE: 20170725
